FAERS Safety Report 5267933-8 (Version None)
Quarter: 2007Q1

REPORT INFORMATION
  Report Type: 
  Country: None (occurrence: None)
  Receive Date: 20061213
  Receipt Date: 20050617
  Transmission Date: 20070707
  Serious: Yes (Other)
  Sender: FDA-Public Use
  Company Number: 2005UW09214

PATIENT
  Age: 48 Year
  Sex: Female

DRUGS (4)
  1. NOLVADEX [Suspect]
     Indication: BREAST CANCER
  2. PREVACID [Concomitant]
  3. PRINIVIL [Concomitant]
  4. CALCIUM [Concomitant]

REACTIONS (3)
  - ENDOMETRIOSIS [None]
  - MUSCLE SPASMS [None]
  - VOMITING [None]
